FAERS Safety Report 14163506 (Version 1)
Quarter: 2017Q4

REPORT INFORMATION
  Report Type: Spontaneous
  Country: CA (occurrence: CA)
  Receive Date: 20171106
  Receipt Date: 20171106
  Transmission Date: 20180321
  Serious: Yes (Other)
  Sender: FDA-Public Use
  Company Number: CA-PFIZER INC-2017466869

PATIENT
  Age: 50 Year
  Sex: Male

DRUGS (1)
  1. SOMAVERT [Suspect]
     Active Substance: PEGVISOMANT
     Dosage: 20 MG, 1X/DAY
     Route: 058
     Dates: start: 2014

REACTIONS (5)
  - Diabetes mellitus [Unknown]
  - Insulin-like growth factor increased [Unknown]
  - Hypertension [Unknown]
  - Condition aggravated [Unknown]
  - Fatigue [Unknown]
